FAERS Safety Report 8353080-5 (Version None)
Quarter: 2012Q2

REPORT INFORMATION
  Report Type: 
  Country: None (occurrence: None)
  Receive Date: 20120511
  Receipt Date: 20120508
  Transmission Date: 20120825
  Serious: No
  Sender: FDA-Public Use
  Company Number: US-PFIZER INC-2012112608

PATIENT
  Sex: Female
  Weight: 68.027 kg

DRUGS (7)
  1. NORVASC [Suspect]
     Dosage: UNK
  2. ACCUPRIL [Suspect]
     Dosage: UNK
  3. NARDIL [Suspect]
     Dosage: UNK
  4. CADUET [Suspect]
     Dosage: UNK
  5. LIPITOR [Suspect]
     Indication: BLOOD CHOLESTEROL INCREASED
     Dosage: 20 MG, 1X/DAY
     Route: 048
     Dates: start: 20110101
  6. GLUCOTROL XL [Suspect]
     Dosage: UNK
  7. FUROSEMIDE [Concomitant]
     Dosage: 40 MG, UNK

REACTIONS (1)
  - JOINT SWELLING [None]
